FAERS Safety Report 6661495-6 (Version None)
Quarter: 2010Q1

REPORT INFORMATION
  Report Type: 
  Country: None (occurrence: None)
  Receive Date: 20100331
  Receipt Date: 20100319
  Transmission Date: 20100710
  Serious: Yes (Other)
  Sender: FDA-Public Use
  Company Number: JP-PFIZER INC-2010035851

PATIENT
  Age: 67 Year
  Sex: Male

DRUGS (1)
  1. ESTRAMUSTINE PHOSPHATE [Suspect]
     Dosage: 626.8 MG TOTAL
     Dates: start: 20090806, end: 20100113

REACTIONS (2)
  - INTERSTITIAL LUNG DISEASE [None]
  - NAUSEA [None]
